FAERS Safety Report 8531668-6 (Version None)
Quarter: 2012Q3

REPORT INFORMATION
  Report Type: 
  Country: None (occurrence: None)
  Receive Date: 20120723
  Receipt Date: 20120717
  Transmission Date: 20120928
  Serious: Yes (Hospitalization)
  Sender: FDA-Public Use
  Company Number: CA-BAYER-2012-071139

PATIENT

DRUGS (2)
  1. ADALAT [Interacting]
  2. ALEVE [Suspect]
     Indication: ARTHRITIS

REACTIONS (1)
  - MOVEMENT DISORDER [None]
